FAERS Safety Report 9501283 (Version 1)
Quarter: 2013Q3

REPORT INFORMATION
  Report Type: Report from Study
  Country: CN (occurrence: CN)
  Receive Date: 20130905
  Receipt Date: 20130905
  Transmission Date: 20140515
  Serious: Yes (Other)
  Sender: FDA-Public Use
  Company Number: CN-ROCHE-1270809

PATIENT
  Sex: Female

DRUGS (3)
  1. PEGASYS [Suspect]
     Indication: HEPATITIS C
     Route: 058
     Dates: start: 201304, end: 201307
  2. PEGASYS [Suspect]
     Dosage: DOSE REDUCED
     Route: 058
     Dates: start: 201307
  3. RIBAVIRIN [Concomitant]
     Indication: HEPATITIS C
     Dosage: 6 DOSE FORM A DAY
     Route: 048
     Dates: start: 201304

REACTIONS (1)
  - White blood cell count decreased [Unknown]
